FAERS Safety Report 13012390 (Version 1)
Quarter: 2016Q4

REPORT INFORMATION
  Report Type: Spontaneous
  Country: US (occurrence: US)
  Receive Date: 20161209
  Receipt Date: 20161209
  Transmission Date: 20170207
  Serious: No
  Sender: FDA-Public Use
  Company Number: US-PFIZER INC-2016565698

PATIENT
  Age: 60 Year
  Sex: Female

DRUGS (6)
  1. BACLOFEN. [Concomitant]
     Active Substance: BACLOFEN
     Indication: SURGERY
     Dosage: 10 MG, 2X/DAY
     Route: 048
     Dates: start: 2000
  2. AVINZA [Suspect]
     Active Substance: MORPHINE SULFATE
     Dosage: UNK, 60MG/90MG
  3. DOXYCYCLINE. [Concomitant]
     Active Substance: DOXYCYCLINE
     Indication: SKIN DISORDER
     Dosage: 100 MG, 2X/DAY
     Route: 048
     Dates: start: 199411
  4. DIAZEPAM. [Concomitant]
     Active Substance: DIAZEPAM
     Indication: MUSCLE SPASMS
     Dosage: 10 MG, 3X/DAY
     Route: 048
     Dates: start: 199411
  5. LEVSIN [Concomitant]
     Active Substance: HYOSCYAMINE SULFATE
     Indication: ABDOMINAL PAIN UPPER
     Dosage: 25 MG, AS NEEDED
     Route: 048
     Dates: start: 2000
  6. TOPAMAX [Concomitant]
     Active Substance: TOPIRAMATE
     Indication: MUSCLE SPASMS
     Dosage: 25 MG, 2X/DAY
     Route: 048

REACTIONS (1)
  - Weight increased [Unknown]
